FAERS Safety Report 6698347-1 (Version None)
Quarter: 2010Q2

REPORT INFORMATION
  Report Type: 
  Country: None (occurrence: None)
  Receive Date: 20100426
  Receipt Date: 20100426
  Transmission Date: 20101027
  Serious: Yes (Hospitalization)
  Sender: FDA-Public Use
  Company Number: None

PATIENT
  Age: 37 Year
  Sex: Male
  Weight: 88 kg

DRUGS (3)
  1. NALTREXONE HYDROCHLORIDE [Suspect]
     Indication: CARDIOVASCULAR DISORDER
     Dosage: 50 MG EVERY DAY PO
     Route: 048
     Dates: start: 20100222, end: 20100320
  2. NALTREXONE HYDROCHLORIDE [Suspect]
     Indication: PLEUROPERICARDITIS
     Dosage: 50 MG EVERY DAY PO
     Route: 048
     Dates: start: 20100222, end: 20100320
  3. NALTREXONE HYDROCHLORIDE [Suspect]
     Indication: SURGERY
     Dosage: 50 MG EVERY DAY PO
     Route: 048
     Dates: start: 20100222, end: 20100320

REACTIONS (6)
  - CARDIAC TAMPONADE [None]
  - EOSINOPHIL COUNT INCREASED [None]
  - HAEMOPTYSIS [None]
  - PERICARDIAL EFFUSION [None]
  - PLEUROPERICARDITIS [None]
  - TACHYCARDIA [None]
